FAERS Safety Report 16687833 (Version 2)
Quarter: 2020Q2

REPORT INFORMATION
  Report Type: Spontaneous
  Country: CA (occurrence: CA)
  Receive Date: 20190809
  Receipt Date: 20200401
  Transmission Date: 20200713
  Serious: Yes (Disabling)
  Sender: FDA-Public Use
  Company Number: CA-BAUSCH-BL-2019-022185

PATIENT
  Age: 62 Year
  Sex: Male

DRUGS (1)
  1. LOPROX [Suspect]
     Active Substance: CICLOPIROX\CICLOPIROX OLAMINE
     Indication: TINEA PEDIS
     Route: 061

REACTIONS (3)
  - Skin hypertrophy [Recovered/Resolved]
  - Application site pain [Recovered/Resolved]
  - Administration site warmth [Recovered/Resolved]
